FAERS Safety Report 10507801 (Version 1)
Quarter: 2014Q4

REPORT INFORMATION
  Report Type: Spontaneous
  Country: US (occurrence: US)
  Receive Date: 20141009
  Receipt Date: 20141009
  Transmission Date: 20150528
  Serious: Yes (Hospitalization, Other)
  Sender: FDA-Public Use
  Company Number: US-ABBVIE-14P-163-1291599-00

PATIENT
  Sex: Male
  Weight: 79.45 kg

DRUGS (3)
  1. ANDROGEL [Suspect]
     Active Substance: TESTOSTERONE
     Indication: PRODUCT USED FOR UNKNOWN INDICATION
     Dosage: TWO 5 GRAM PACKETS DAILY
     Route: 061
     Dates: start: 2009
  2. UNKNOWN ASTHMA MEDICATION [Concomitant]
     Indication: PRODUCT USED FOR UNKNOWN INDICATION
  3. XANAX [Concomitant]
     Active Substance: ALPRAZOLAM
     Indication: PRODUCT USED FOR UNKNOWN INDICATION

REACTIONS (4)
  - Thrombosis [Recovered/Resolved]
  - Road traffic accident [Not Recovered/Not Resolved]
  - Drug dose omission [Not Recovered/Not Resolved]
  - Back injury [Not Recovered/Not Resolved]
